FAERS Safety Report 25320512 (Version 4)
Quarter: 2025Q4

REPORT INFORMATION
  Report Type: Spontaneous
  Country: US (occurrence: US)
  Receive Date: 20250515
  Receipt Date: 20251113
  Transmission Date: 20260118
  Serious: Yes (Hospitalization, Other)
  Sender: BLUEPRINT MEDICINES
  Company Number: US-Blueprint Medicines Corporation-2025-AER-01006

PATIENT
  Age: 54 Year
  Sex: Female

DRUGS (3)
  1. AYVAKIT [Suspect]
     Active Substance: AVAPRITINIB
     Indication: Mastocytoma
     Route: 065
     Dates: start: 20230221
  2. AYVAKIT [Suspect]
     Active Substance: AVAPRITINIB
     Indication: Malignant mast cell neoplasm
     Route: 065
     Dates: start: 20230221
  3. AYVAKIT [Suspect]
     Active Substance: AVAPRITINIB
     Route: 065
     Dates: start: 20230221

REACTIONS (12)
  - Neck pain [Unknown]
  - Gastric ulcer [Unknown]
  - Intervertebral disc disorder [Unknown]
  - Hospitalisation [Unknown]
  - Bone pain [Unknown]
  - Laboratory test abnormal [Unknown]
  - General physical health deterioration [Unknown]
  - Feeling abnormal [Unknown]
  - Abdominal pain upper [Unknown]
  - Immune system disorder [Unknown]
  - Product dose omission in error [Unknown]
  - Intentional dose omission [Unknown]
